FAERS Safety Report 6408478-9 (Version None)
Quarter: 2009Q4

REPORT INFORMATION
  Report Type: 
  Country: None (occurrence: None)
  Receive Date: 20091021
  Receipt Date: 20091015
  Transmission Date: 20100525
  Serious: Yes (Death, Other)
  Sender: FDA-Public Use
  Company Number: GB-TEVA-212550ISR

PATIENT
  Age: 52 Year
  Sex: Female

DRUGS (6)
  1. EPIRUBICIN [Suspect]
  2. CLOZAPINE [Suspect]
     Indication: SCHIZOPHRENIA
     Route: 048
     Dates: start: 20030909, end: 20060828
  3. CLOZAPINE [Suspect]
     Route: 048
     Dates: start: 20061009
  4. CYCLOPHOSPHAMIDE [Suspect]
  5. DOCETAXEL [Suspect]
  6. CHEMOTHERAPEUTICS NOS [Suspect]
     Dates: start: 20080522

REACTIONS (9)
  - BREAST CANCER [None]
  - CIRCULATORY COLLAPSE [None]
  - DIABETES MELLITUS [None]
  - HYPOGLYCAEMIA [None]
  - LYMPHOCYTE COUNT DECREASED [None]
  - MASTECTOMY [None]
  - PNEUMONIA [None]
  - TREATMENT NONCOMPLIANCE [None]
  - WHITE BLOOD CELL COUNT DECREASED [None]
